FAERS Safety Report 4867681-X (Version None)
Quarter: 2005Q4

REPORT INFORMATION
  Report Type: 
  Country: None (occurrence: None)
  Receive Date: 20051222
  Receipt Date: 20051222
  Transmission Date: 20060501
  Serious: Yes (Life-Threatening, Hospitalization)
  Sender: FDA-Public Use
  Company Number: None

PATIENT
  Age: 76 Year
  Sex: Female
  Weight: 68.9467 kg

DRUGS (2)
  1. EVISTA [Suspect]
     Indication: OSTEOPOROSIS
     Dosage: 60 MG   ONCE DAILY  PO
     Route: 048
     Dates: start: 20020326, end: 20030318
  2. EVISTA [Suspect]
     Indication: OSTEOPOROSIS
     Dosage: 60 MG   ONCE DAILY  PO
     Route: 048
     Dates: start: 20050914, end: 20051201

REACTIONS (2)
  - UTERINE CANCER [None]
  - VAGINAL HAEMORRHAGE [None]
